FAERS Safety Report 8814462 (Version 2)
Quarter: 2012Q4

REPORT INFORMATION
  Report Type: Spontaneous
  Country: US (occurrence: None)
  Receive Date: 20120925
  Receipt Date: 20121003
  Transmission Date: 20130627
  Serious: Yes (Hospitalization)
  Sender: FDA-Public Use
  Company Number: JPI-P-021755

PATIENT
  Age: 29 Year
  Sex: Female
  Weight: 144.24 kg

DRUGS (21)
  1. XYREM [Suspect]
     Indication: CATAPLEXY
     Route: 048
     Dates: start: 20120520, end: 20120527
  2. XYREM [Suspect]
     Indication: EXCESSIVE DAYTIME SLEEPINESS
     Route: 048
     Dates: start: 20120520, end: 20120527
  3. XYREM [Suspect]
     Route: 048
     Dates: start: 20120520, end: 20120527
  4. XYREM [Suspect]
     Indication: CATAPLEXY
     Route: 048
     Dates: start: 20120528, end: 2012
  5. XYREM [Suspect]
     Indication: EXCESSIVE DAYTIME SLEEPINESS
     Route: 048
     Dates: start: 20120528, end: 2012
  6. XYREM [Suspect]
     Route: 048
     Dates: start: 20120528, end: 2012
  7. XYREM [Suspect]
     Indication: CATAPLEXY
     Route: 048
     Dates: start: 2012, end: 2012
  8. XYREM [Suspect]
     Indication: EXCESSIVE DAYTIME SLEEPINESS
     Route: 048
     Dates: start: 2012, end: 2012
  9. XYREM [Suspect]
     Route: 048
     Dates: start: 2012, end: 2012
  10. XYREM [Suspect]
     Indication: CATAPLEXY
     Route: 048
     Dates: end: 20120910
  11. XYREM [Suspect]
     Indication: EXCESSIVE DAYTIME SLEEPINESS
     Route: 048
     Dates: end: 20120910
  12. XYREM [Suspect]
     Route: 048
     Dates: end: 20120910
  13. XYREM [Suspect]
     Indication: CATAPLEXY
     Dosage: UNSPECIFIED DOSE DECREASE, Oral
     Dates: start: 201209
  14. XYREM [Suspect]
     Indication: EXCESSIVE DAYTIME SLEEPINESS
     Dosage: UNSPECIFIED DOSE DECREASE, Oral
     Dates: start: 201209
  15. XYREM [Suspect]
     Dosage: UNSPECIFIED DOSE DECREASE, Oral
     Dates: start: 201209
  16. BIRTH CONTROL PILLS NOS [Suspect]
     Indication: NARCOLEPSY
  17. AMPHETAMINE, DEXTROAMPHETAMINE MIXED SALTS (IR) [Concomitant]
  18. AMPHETAMINE, DEXTROAMPHETAMINE MIXED SALTS (XR) [Concomitant]
  19. FLUOXETINE [Concomitant]
  20. FUROSEMIDE [Concomitant]
  21. MULTIVITAMIN [Concomitant]

REACTIONS (12)
  - Dyspnoea [None]
  - Muscle spasms [None]
  - Muscle twitching [None]
  - Somnambulism [None]
  - Fatigue [None]
  - Insomnia [None]
  - Contusion [None]
  - Contusion [None]
  - Pain in extremity [None]
  - Hypoaesthesia [None]
  - Thrombosis [None]
  - Fall [None]
